FAERS Safety Report 5647873-2 (Version None)
Quarter: 2008Q1

REPORT INFORMATION
  Report Type: 
  Country: None (occurrence: None)
  Receive Date: 20080303
  Receipt Date: 20080220
  Transmission Date: 20080703
  Serious: Yes (Other)
  Sender: FDA-Public Use
  Company Number: US-PFIZER INC-2008017659

PATIENT
  Sex: Female
  Weight: 73.5 kg

DRUGS (5)
  1. CHANTIX [Suspect]
     Indication: SMOKING CESSATION THERAPY
  2. PRILOSEC [Concomitant]
  3. COMPAZINE [Concomitant]
  4. ACTIQ [Concomitant]
  5. ALL OTHER THERAPEUTIC PRODUCTS [Concomitant]

REACTIONS (2)
  - BEDRIDDEN [None]
  - MIGRAINE [None]
